FAERS Safety Report 14967082 (Version 1)
Quarter: 2018Q2

REPORT INFORMATION
  Report Type: Spontaneous
  Country: GB (occurrence: GB)
  Receive Date: 20180604
  Receipt Date: 20180604
  Transmission Date: 20180711
  Serious: No
  Sender: FDA-Public Use
  Company Number: GB-CHEPLA-C20170457

PATIENT

DRUGS (1)
  1. VESANOID [Suspect]
     Active Substance: TRETINOIN
     Route: 048

REACTIONS (1)
  - Mucosal inflammation [Unknown]
